FAERS Safety Report 10373332 (Version 3)
Quarter: 2014Q4

REPORT INFORMATION
  Report Type: Spontaneous
  Country: US (occurrence: US)
  Receive Date: 20140808
  Receipt Date: 20141006
  Transmission Date: 20150528
  Serious: Yes (Hospitalization, Other)
  Sender: FDA-Public Use
  Company Number: US-BRISTOL-MYERS SQUIBB COMPANY-20546438

PATIENT
  Age: 58 Year
  Sex: Female
  Weight: 117.91 kg

DRUGS (12)
  1. SPRYCEL [Suspect]
     Active Substance: DASATINIB
     Indication: CHRONIC MYELOID LEUKAEMIA
     Dosage: CHANGED TO 80MG/D
     Route: 048
     Dates: start: 201310
  2. METOPROLOL [Concomitant]
     Active Substance: METOPROLOL
  3. CYMBALTA [Concomitant]
     Active Substance: DULOXETINE HYDROCHLORIDE
  4. GLIMEPIRIDE. [Concomitant]
     Active Substance: GLIMEPIRIDE
  5. LOSARTAN [Concomitant]
     Active Substance: LOSARTAN
  6. LORAZEPAM. [Concomitant]
     Active Substance: LORAZEPAM
  7. RYTHMOL [Concomitant]
     Active Substance: PROPAFENONE HYDROCHLORIDE
  8. SIMVASTATIN. [Concomitant]
     Active Substance: SIMVASTATIN
  9. PROTONIX [Concomitant]
     Active Substance: PANTOPRAZOLE SODIUM
  10. BUPROPION [Concomitant]
     Active Substance: BUPROPION
  11. PHENERGAN [Concomitant]
     Active Substance: PROMETHAZINE HYDROCHLORIDE
  12. ASPIRIN. [Concomitant]
     Active Substance: ASPIRIN

REACTIONS (14)
  - Arrhythmia [Unknown]
  - Weight increased [Unknown]
  - Decreased appetite [Unknown]
  - Fatigue [Unknown]
  - Atrial fibrillation [Unknown]
  - Red blood cell count decreased [Unknown]
  - Dizziness [Unknown]
  - Drug intolerance [Unknown]
  - Alopecia [Unknown]
  - Angina pectoris [Unknown]
  - Constipation [Unknown]
  - Skin ulcer [Unknown]
  - Supraventricular tachycardia [Unknown]
  - Nausea [Unknown]

NARRATIVE: CASE EVENT DATE: 201403
